FAERS Safety Report 21724349 (Version 1)
Quarter: 2022Q4

REPORT INFORMATION
  Report Type: Report from Study
  Country: JP (occurrence: JP)
  Receive Date: 20221213
  Receipt Date: 20221213
  Transmission Date: 20230113
  Serious: Yes (Hospitalization)
  Sender: FDA-Public Use
  Company Number: JP-BRISTOL-MYERS SQUIBB COMPANY-BMS-2017-119166

PATIENT
  Age: 60 Year
  Sex: Male
  Weight: 47.75 kg

DRUGS (22)
  1. PACLITAXEL [Suspect]
     Active Substance: PACLITAXEL
     Indication: Gastric cancer
     Dosage: UNK UNK, QWK
     Dates: start: 20180719
  2. PLACEBO [Suspect]
     Active Substance: UNSPECIFIED INGREDIENT
     Indication: Gastric cancer
     Route: 042
     Dates: start: 20171222, end: 20180608
  3. CAPECITABINE [Suspect]
     Active Substance: CAPECITABINE
     Indication: Gastric cancer
     Dosage: 3000 MG, BID
     Route: 048
     Dates: start: 20171222
  4. CAPECITABINE [Suspect]
     Active Substance: CAPECITABINE
     Dosage: 1250 MG, BID
     Route: 048
     Dates: start: 20180112
  5. CAPECITABINE [Suspect]
     Active Substance: CAPECITABINE
     Dosage: 1200 MG, BID (14 DAYS ON FOLLOWED BY 7 DAYS OFF)
     Route: 048
  6. RAMUCIRUMAB [Suspect]
     Active Substance: RAMUCIRUMAB
     Indication: Gastric cancer
     Dosage: UNK
     Dates: start: 20180719
  7. OXALIPLATIN [Suspect]
     Active Substance: OXALIPLATIN
     Indication: Gastric cancer
     Dosage: 195 MG, Q3WK
     Route: 042
  8. OXALIPLATIN [Suspect]
     Active Substance: OXALIPLATIN
     Route: 042
     Dates: start: 20180202
  9. OXALIPLATIN [Suspect]
     Active Substance: OXALIPLATIN
     Dosage: UNK
     Route: 042
     Dates: start: 20180622
  10. VONOPRAZAN FUMARATE [Concomitant]
     Active Substance: VONOPRAZAN FUMARATE
     Indication: Product used for unknown indication
     Dosage: UNK
     Dates: start: 20171125
  11. VONOPRAZAN FUMARATE [Concomitant]
     Active Substance: VONOPRAZAN FUMARATE
     Dosage: UNK
     Dates: start: 20180112
  12. SODIUM ALGINATE [Concomitant]
     Active Substance: SODIUM ALGINATE
     Indication: Product used for unknown indication
     Dosage: UNK
     Dates: start: 20171125
  13. SUCRALFATE [Concomitant]
     Active Substance: SUCRALFATE
     Indication: Product used for unknown indication
     Dosage: UNK
     Dates: start: 20171125
  14. ACETAMINOPHEN\TRAMADOL [Concomitant]
     Active Substance: ACETAMINOPHEN\TRAMADOL
     Indication: Product used for unknown indication
     Dosage: UNK
     Dates: start: 20171125, end: 20180701
  15. POLARAMINE [Concomitant]
     Active Substance: DEXCHLORPHENIRAMINE MALEATE
     Indication: Product used for unknown indication
     Dosage: UNK
     Dates: start: 20171222
  16. GRANISETRON [Concomitant]
     Active Substance: GRANISETRON
     Indication: Product used for unknown indication
     Dosage: UNK
     Dates: start: 20171222
  17. DEXAMETHASONE SODIUM PHOSPHATE [Concomitant]
     Active Substance: DEXAMETHASONE SODIUM PHOSPHATE
     Indication: Product used for unknown indication
     Dosage: UNK
     Dates: start: 20171222
  18. PRIMPERAN COMPLEX                  /01071201/ [Concomitant]
     Indication: Product used for unknown indication
     Dosage: UNK
     Dates: start: 20171226
  19. CYMBALTA [Concomitant]
     Active Substance: DULOXETINE HYDROCHLORIDE
     Indication: Product used for unknown indication
     Dosage: UNK
     Dates: start: 20180330, end: 20180701
  20. NAUZELIN [Concomitant]
     Active Substance: DOMPERIDONE
     Indication: Product used for unknown indication
     Dosage: UNK
     Dates: start: 20180626, end: 20180701
  21. DOMPERIDONE [Concomitant]
     Active Substance: DOMPERIDONE
     Indication: Product used for unknown indication
     Dosage: UNK
     Dates: start: 20180627, end: 20180701
  22. TRAMADOL [Concomitant]
     Active Substance: TRAMADOL
     Indication: Product used for unknown indication
     Dosage: UNK, QD
     Dates: start: 20180709

REACTIONS (3)
  - Decreased appetite [Recovered/Resolved]
  - Vomiting [Recovered/Resolved]
  - Nausea [Recovered/Resolved]

NARRATIVE: CASE EVENT DATE: 20171226
